FAERS Safety Report 8996919 (Version 3)
Quarter: 2013Q2

REPORT INFORMATION
  Report Type: Spontaneous
  Country: JP (occurrence: None)
  Receive Date: 20121220
  Receipt Date: 20130524
  Transmission Date: 20140414
  Serious: Yes (Other)
  Sender: FDA-Public Use
  Company Number: JP-1195779

PATIENT
  Age: 66 Year
  Sex: Female

DRUGS (2)
  1. IOPIDINE 1 % OPHTHALMIC SOLUTION (IOPIDINE 1%) [Suspect]
     Indication: INTRAOCULAR PRESSURE INCREASED
     Dosage: OS
     Route: 047
     Dates: start: 20121204, end: 20121204
  2. SANPILO [Concomitant]

REACTIONS (7)
  - Cardiogenic shock [None]
  - Headache [None]
  - Myocardial ischaemia [None]
  - Cardiac murmur [None]
  - Bradycardia [None]
  - Feeling abnormal [None]
  - Altered state of consciousness [None]
